FAERS Safety Report 13774343 (Version 3)
Quarter: 2017Q3

REPORT INFORMATION
  Report Type: Spontaneous
  Country: FI (occurrence: FI)
  Receive Date: 20170721
  Receipt Date: 20170815
  Transmission Date: 20171127
  Serious: Yes (Disabling, Other)
  Sender: FDA-Public Use
  Company Number: FI-MYLANLABS-2017M1042775

PATIENT

DRUGS (21)
  1. SPIRIVA [Concomitant]
     Active Substance: TIOTROPIUM BROMIDE MONOHYDRATE
     Indication: PRODUCT USED FOR UNKNOWN INDICATION
     Dosage: 5 ?G, QD
     Route: 055
  2. SOMAC [Concomitant]
     Active Substance: PANTOPRAZOLE SODIUM
     Indication: PRODUCT USED FOR UNKNOWN INDICATION
     Dosage: UNK
     Route: 048
  3. DYMISTA [Concomitant]
     Active Substance: AZELASTINE HYDROCHLORIDE\FLUTICASONE PROPIONATE
     Indication: PRODUCT USED FOR UNKNOWN INDICATION
     Dosage: 4 DF, QD
     Route: 045
  4. SERETIDE [Concomitant]
     Active Substance: FLUTICASONE PROPIONATE\SALMETEROL XINAFOATE
     Indication: PRODUCT USED FOR UNKNOWN INDICATION
     Dosage: 4 DF, QD
     Route: 055
  5. ORLOC [Concomitant]
     Active Substance: BISOPROLOL FUMARATE
     Indication: ARRHYTHMIA PROPHYLAXIS
  6. KALCIPOS-D [Concomitant]
     Active Substance: CALCIUM CARBONATE\CHOLECALCIFEROL
     Indication: PRODUCT USED FOR UNKNOWN INDICATION
     Dosage: 2 DF, QD
     Route: 048
  7. VENTOLINE [Concomitant]
     Active Substance: ALBUTEROL
     Indication: DYSPNOEA
  8. BRICANYL [Concomitant]
     Active Substance: TERBUTALINE SULFATE
     Indication: COUGH
     Dosage: UNK
     Route: 055
  9. ORLOC [Concomitant]
     Active Substance: BISOPROLOL FUMARATE
     Indication: HYPERTENSION
     Dosage: 5 MG, QD
     Route: 048
  10. VENTOLINE [Concomitant]
     Active Substance: ALBUTEROL
     Indication: COUGH
     Dosage: UNK UNK, HS
  11. PANADOL [Concomitant]
     Active Substance: ACETAMINOPHEN
     Indication: PRODUCT USED FOR UNKNOWN INDICATION
     Dosage: UNK
     Route: 048
  12. CARDACE [Concomitant]
     Active Substance: RAMIPRIL
     Indication: HYPERTENSION
     Dosage: UNK
     Route: 048
  13. MAREVAN [Concomitant]
     Active Substance: WARFARIN SODIUM
     Indication: THROMBOSIS PROPHYLAXIS
     Dosage: UNK
     Route: 048
  14. PANACOD [Concomitant]
     Active Substance: ACETAMINOPHEN\CODEINE PHOSPHATE
     Indication: PAIN
     Dosage: UNK
     Route: 048
  15. MONTELUKAST [Suspect]
     Active Substance: MONTELUKAST SODIUM
     Indication: ASTHMA
     Dosage: 10 MG, QD
     Route: 048
     Dates: end: 20170615
  16. HYDROCORTISON [Concomitant]
     Active Substance: HYDROCORTISONE
     Indication: ADRENAL INSUFFICIENCY
     Dosage: 15 MG, QD
     Route: 048
  17. VENTOLINE [Concomitant]
     Active Substance: ALBUTEROL
     Indication: PRODUCTIVE COUGH
  18. PREDNISOLON [Concomitant]
     Active Substance: PREDNISOLONE
     Indication: AKATHISIA
     Dosage: 20 MG, HS
     Route: 048
  19. BRICANYL [Concomitant]
     Active Substance: TERBUTALINE SULFATE
     Indication: DYSPNOEA
  20. BURANA [Concomitant]
     Active Substance: IBUPROFEN
     Indication: HEADACHE
     Dosage: UNK
     Route: 048
  21. FURESIS [Concomitant]
     Active Substance: FUROSEMIDE
     Indication: DIURETIC THERAPY
     Dosage: 20 MG, QD
     Route: 048

REACTIONS (6)
  - Fatigue [Recovering/Resolving]
  - Hypotension [Recovering/Resolving]
  - Arrhythmia [Recovering/Resolving]
  - Aggression [Recovering/Resolving]
  - Pallor [Recovering/Resolving]
  - Hyperhidrosis [Recovering/Resolving]

NARRATIVE: CASE EVENT DATE: 201705
